FAERS Safety Report 18693460 (Version 2)
Quarter: 2021Q2

REPORT INFORMATION
  Report Type: Spontaneous
  Country: US (occurrence: US)
  Receive Date: 20210104
  Receipt Date: 20210429
  Transmission Date: 20210717
  Serious: Yes (Death, Hospitalization, Other)
  Sender: FDA-Public Use
  Company Number: US-DRREDDYS-USA/USA/20/0130565

PATIENT
  Age: 64 Year
  Sex: Female

DRUGS (3)
  1. TACROLIMUS. [Suspect]
     Active Substance: TACROLIMUS
     Indication: IMMUNOSUPPRESSANT DRUG THERAPY
     Dosage: DRUG DURATION: MORE THAN 90 DAYS
  2. MYCOPHENOLATE MOFETIL. [Suspect]
     Active Substance: MYCOPHENOLATE MOFETIL
     Indication: IMMUNOSUPPRESSANT DRUG THERAPY
     Dosage: DRUG DURATION: MORE THAN 90 DAYS
  3. BASILIXIMAB [Suspect]
     Active Substance: BASILIXIMAB
     Indication: IMMUNOSUPPRESSANT DRUG THERAPY

REACTIONS (6)
  - Osteomyelitis [Fatal]
  - Renal mass [Fatal]
  - Intervertebral discitis [Fatal]
  - Disseminated aspergillosis [Fatal]
  - Cytomegalovirus viraemia [Fatal]
  - Aspergillus infection [Fatal]
